FAERS Safety Report 8622708-4 (Version None)
Quarter: 2012Q3

REPORT INFORMATION
  Report Type: 
  Country: None (occurrence: None)
  Receive Date: 20120827
  Receipt Date: 20120816
  Transmission Date: 20120928
  Serious: Yes (Other)
  Sender: FDA-Public Use
  Company Number: US-BAYER-2012-077154

PATIENT
  Age: 19 Year
  Sex: Female

DRUGS (4)
  1. DROSPIRENONE AND ETHINYL ESTRADIOL [Suspect]
     Dosage: UNK
     Dates: start: 20080101
  2. IBUPROFEN [Concomitant]
     Dosage: 800 MG, TID
     Route: 048
     Dates: start: 20081113
  3. YASMIN [Suspect]
     Dosage: UNK
     Dates: start: 20080101
  4. YAZ [Suspect]
     Dosage: UNK
     Dates: start: 20080101

REACTIONS (4)
  - PULMONARY EMBOLISM [None]
  - INJURY [None]
  - PAIN [None]
  - DEEP VEIN THROMBOSIS [None]
